FAERS Safety Report 5836850-4 (Version None)
Quarter: 2008Q3

REPORT INFORMATION
  Report Type: 
  Country: None (occurrence: None)
  Receive Date: 20080807
  Receipt Date: 20080728
  Transmission Date: 20090109
  Serious: Yes (Other)
  Sender: FDA-Public Use
  Company Number: B0529961A

PATIENT
  Age: 62 Year
  Sex: Male
  Weight: 84 kg

DRUGS (6)
  1. AVANDAMET [Suspect]
     Dosage: 2TAB PER DAY
     Route: 048
     Dates: start: 20061205
  2. NOVONORM [Concomitant]
     Dosage: 1MG THREE TIMES PER DAY
  3. LIPANTHYL [Concomitant]
     Dosage: 200MG PER DAY
  4. SERETIDE [Concomitant]
  5. LASIX [Concomitant]
     Route: 065
  6. SPIRIVA [Concomitant]
     Dosage: 18MCG PER DAY

REACTIONS (4)
  - CHRONIC OBSTRUCTIVE PULMONARY DISEASE [None]
  - DYSPNOEA EXERTIONAL [None]
  - ULCER [None]
  - WEIGHT INCREASED [None]
